FAERS Safety Report 25014876 (Version 3)
Quarter: 2025Q3

REPORT INFORMATION
  Report Type: Spontaneous
  Country: JP (occurrence: JP)
  Receive Date: 20250226
  Receipt Date: 20250715
  Transmission Date: 20251021
  Serious: Yes (Other)
  Sender: MERCK SHARP & DOHME LLC
  Company Number: JP-MSD-M2023-17851

PATIENT
  Age: 65 Year
  Sex: Female

DRUGS (5)
  1. KEYTRUDA [Suspect]
     Active Substance: PEMBROLIZUMAB
     Indication: Metastatic uterine cancer
     Dosage: DOSE DESCRIPTION : 200 MILLIGRAM, Q3W?DAILY DOSE : 9.4 MILLIGRAM?REGIMEN DOSE : 200  MILLIGRAM
     Route: 041
     Dates: start: 20230411, end: 202306
  2. LENVATINIB MESYLATE [Suspect]
     Active Substance: LENVATINIB MESYLATE
     Indication: Metastatic uterine cancer
     Route: 048
     Dates: start: 202404
  3. LENVATINIB MESYLATE [Suspect]
     Active Substance: LENVATINIB MESYLATE
     Indication: Metastatic uterine cancer
     Route: 048
     Dates: start: 20230411, end: 20230508
  4. LENVATINIB MESYLATE [Suspect]
     Active Substance: LENVATINIB MESYLATE
     Indication: Metastatic uterine cancer
     Route: 048
     Dates: start: 20230519, end: 2023
  5. LENVATINIB MESYLATE [Suspect]
     Active Substance: LENVATINIB MESYLATE
     Indication: Metastatic uterine cancer
     Route: 048
     Dates: start: 2023, end: 20230901

REACTIONS (10)
  - Platelet count decreased [Unknown]
  - Vulval disorder [Unknown]
  - Hypothyroidism [Unknown]
  - Immune-mediated dermatitis [Recovered/Resolved]
  - Hypertension [Recovered/Resolved]
  - Urticaria [Unknown]
  - Pyrexia [Recovered/Resolved]
  - Dysphonia [Unknown]
  - Vulvovaginal ulceration [Unknown]
  - Vulvovaginal pain [Unknown]

NARRATIVE: CASE EVENT DATE: 20230420
